FAERS Safety Report 9014073 (Version 4)
Quarter: 2014Q3

REPORT INFORMATION
  Report Type: Spontaneous
  Country: US (occurrence: US)
  Receive Date: 20130115
  Receipt Date: 20140811
  Transmission Date: 20150326
  Serious: Yes (Hospitalization, Disabling, Other)
  Sender: FDA-Public Use
  Company Number: US-009507513-1301USA005195

PATIENT
  Sex: Female

DRUGS (1)
  1. NUVARING [Suspect]
     Active Substance: ETHINYL ESTRADIOL\ETONOGESTREL
     Indication: CONTRACEPTION
     Dosage: UNK
     Route: 067
     Dates: start: 200401, end: 200806

REACTIONS (16)
  - Coagulopathy [Unknown]
  - Tremor [Unknown]
  - Pulmonary embolism [Unknown]
  - Deep vein thrombosis [Unknown]
  - Vena cava filter insertion [Unknown]
  - Bronchitis [Unknown]
  - Pelvic inflammatory disease [Unknown]
  - Nausea [Unknown]
  - Dumping syndrome [Unknown]
  - Thrombectomy [Unknown]
  - Pelvic pain [Unknown]
  - Dysuria [Unknown]
  - Cholecystectomy [Unknown]
  - Syncope [Unknown]
  - Unevaluable event [Unknown]
  - Nasopharyngitis [Unknown]

NARRATIVE: CASE EVENT DATE: 2008
